FAERS Safety Report 11853091 (Version 1)
Quarter: 2015Q4

REPORT INFORMATION
  Report Type: Spontaneous
  Country: US (occurrence: US)
  Receive Date: 20151218
  Receipt Date: 20151218
  Transmission Date: 20160305
  Serious: Yes (Death, Other)
  Sender: FDA-Public Use
  Company Number: GXBR2015US002752

PATIENT
  Age: 64 Year
  Sex: Female

DRUGS (2)
  1. AMIODARONE HYDROCHLORIDE. [Suspect]
     Active Substance: AMIODARONE HYDROCHLORIDE
     Indication: ATRIAL FIBRILLATION
     Dosage: 200 MG, UNK
     Route: 048
     Dates: start: 200801, end: 20130926
  2. AMIODARONE HYDROCHLORIDE. [Suspect]
     Active Substance: AMIODARONE HYDROCHLORIDE
     Indication: OFF LABEL USE

REACTIONS (20)
  - Pneumonia [Fatal]
  - Haemoptysis [Fatal]
  - Impaired healing [Unknown]
  - Nervousness [Unknown]
  - Cachexia [Unknown]
  - Cardiac failure congestive [Unknown]
  - Depression [Unknown]
  - Acute respiratory failure [Fatal]
  - Irritability [Unknown]
  - Fatigue [Unknown]
  - Asthenia [Unknown]
  - Dyspnoea [Fatal]
  - Pallor [Unknown]
  - Off label use [Unknown]
  - Pulmonary toxicity [Fatal]
  - Cough [Fatal]
  - Wheezing [Fatal]
  - Restlessness [Unknown]
  - Disturbance in attention [Unknown]
  - Lung infiltration [Fatal]
